FAERS Safety Report 6964033-3 (Version None)
Quarter: 2010Q3

REPORT INFORMATION
  Report Type: 
  Country: None (occurrence: None)
  Receive Date: 20100902
  Receipt Date: 20100902
  Transmission Date: 20110219
  Serious: Yes (Other)
  Sender: FDA-Public Use
  Company Number: None

PATIENT
  Sex: Male

DRUGS (1)
  1. PANTOPRAZOLE [Suspect]
     Indication: BARRETT'S OESOPHAGUS
     Dosage: PANTOPRAZOLE 40MG SUNPHARMA BID ORAL
     Route: 048
     Dates: start: 20100828, end: 20100830

REACTIONS (2)
  - DRY MOUTH [None]
  - PRODUCT SUBSTITUTION ISSUE [None]
